FAERS Safety Report 7118353-2 (Version None)
Quarter: 2010Q4

REPORT INFORMATION
  Report Type: 
  Country: None (occurrence: None)
  Receive Date: 20101123
  Receipt Date: 20101119
  Transmission Date: 20110411
  Serious: Yes (Death)
  Sender: FDA-Public Use
  Company Number: GB-ASTRAZENECA-2010SE51510

PATIENT
  Age: 70 Year
  Sex: Male
  Weight: 73.6 kg

DRUGS (6)
  1. IRESSA [Suspect]
     Indication: LUNG NEOPLASM MALIGNANT
     Route: 048
     Dates: start: 20100811, end: 20100928
  2. LEVOTHYROXINE SODIUM [Concomitant]
     Indication: HYPOTHYROIDISM
     Dosage: FOR YEARS
     Route: 048
  3. VALSARTAN [Concomitant]
     Indication: HYPERTENSION
     Dosage: FOR YEARS
     Route: 048
  4. AMLODIPINE [Concomitant]
     Indication: HYPERTENSION
     Dosage: FOR YEARS
     Route: 048
  5. HYDROCORTISONE [Concomitant]
     Indication: ADDISON'S DISEASE
     Dosage: FOR YEARS
     Route: 048
  6. FLORINEF [Concomitant]
     Indication: ADDISON'S DISEASE
     Dosage: FOR YEARS
     Route: 048

REACTIONS (4)
  - FATIGUE [None]
  - LEFT VENTRICULAR FAILURE [None]
  - PULMONARY EMBOLISM [None]
  - RASH [None]
